FAERS Safety Report 8935173 (Version 5)
Quarter: 2015Q4

REPORT INFORMATION
  Report Type: Report from Study
  Country: CA (occurrence: CA)
  Receive Date: 20121129
  Receipt Date: 20151109
  Transmission Date: 20160305
  Serious: Yes (Hospitalization, Other)
  Sender: FDA-Public Use
  Company Number: PHHY2011CA93852

PATIENT
  Age: 60 Year
  Sex: Female

DRUGS (4)
  1. SANDOSTATIN LAR DEPOT [Suspect]
     Active Substance: OCTREOTIDE ACETATE
     Dosage: 30 MG, QMO (EVERY 4 WEEKS)
     Route: 030
  2. SANDOSTATIN LAR DEPOT [Suspect]
     Active Substance: OCTREOTIDE ACETATE
     Dosage: 20 MG, QMO (EVERY 4 WEEKS)
     Route: 030
     Dates: start: 20120611
  3. SANDOSTATIN LAR DEPOT [Suspect]
     Active Substance: OCTREOTIDE ACETATE
     Indication: NEUROENDOCRINE TUMOUR
     Dosage: 20 MG, QMO (EVERY 4 WEEKS)
     Route: 030
     Dates: start: 20110310
  4. SANDOSTATIN LAR DEPOT [Suspect]
     Active Substance: OCTREOTIDE ACETATE
     Dosage: 20 MG, QMO ( EVERY 4 WEEKS)
     Route: 030
     Dates: start: 20110407

REACTIONS (25)
  - Decreased appetite [Unknown]
  - Small intestinal obstruction [Recovered/Resolved]
  - Nasopharyngitis [Unknown]
  - Flatulence [Recovering/Resolving]
  - Vertigo [Unknown]
  - Blood glucose increased [Unknown]
  - Cough [Unknown]
  - Pain in extremity [Unknown]
  - Lower respiratory tract infection [Unknown]
  - Abdominal pain [Recovered/Resolved]
  - Blood pressure increased [Unknown]
  - Back pain [Unknown]
  - Heart rate increased [Unknown]
  - Vomiting [Recovering/Resolving]
  - Diabetes mellitus [Recovering/Resolving]
  - Fatigue [Unknown]
  - Diabetes mellitus inadequate control [Unknown]
  - Weight decreased [Unknown]
  - Insomnia [Unknown]
  - Osteomyelitis [Unknown]
  - Mass [Unknown]
  - Blood pressure decreased [Unknown]
  - Blood glucose fluctuation [Unknown]
  - Asthenia [Recovering/Resolving]
  - Nausea [Unknown]

NARRATIVE: CASE EVENT DATE: 2014
